FAERS Safety Report 8800930 (Version 3)
Quarter: 2023Q4

REPORT INFORMATION
  Report Type: Other
  Country: DE (occurrence: None)
  Receive Date: 20120920
  Receipt Date: 20231020
  Transmission Date: 20240110
  Serious: Yes (Death, Disabling, Congenital Anomaly)
  Sender: FDA-Public Use
  Company Number: DE-ROCHE-1133534

PATIENT
  Sex: Female
  Weight: 0.056 kg

DRUGS (45)
  1. RITUXIMAB [Suspect]
     Active Substance: RITUXIMAB
     Indication: Product used for unknown indication
     Dosage: LAST TIME IN DECEMBER 2011: PRE OR PERICONCEPTIONAL
     Route: 064
     Dates: end: 201112
  2. TACROLIMUS [Suspect]
     Active Substance: TACROLIMUS
     Indication: Product used for unknown indication
     Dosage: FROM GESTATIONAL WEEK 0-14
     Route: 064
     Dates: start: 20111214, end: 20120320
  3. TACROLIMUS [Suspect]
     Active Substance: TACROLIMUS
     Route: 064
  4. TORSEMIDE [Suspect]
     Active Substance: TORSEMIDE
     Indication: Product used for unknown indication
     Dosage: FROM GESTATIONAL WEEK 0-14
     Route: 064
     Dates: start: 20111214, end: 20120320
  5. TORSEMIDE [Suspect]
     Active Substance: TORSEMIDE
     Dosage: FROM GESTATIONAL WEEK 0-14
     Route: 064
  6. TORSEMIDE [Suspect]
     Active Substance: TORSEMIDE
     Route: 064
  7. HYDROXYCHLOROQUINE [Suspect]
     Active Substance: HYDROXYCHLOROQUINE
     Indication: Product used for unknown indication
     Route: 064
     Dates: start: 20111214, end: 20120320
  8. HYDROXYCHLOROQUINE [Suspect]
     Active Substance: HYDROXYCHLOROQUINE
     Dosage: UNK
     Route: 064
  9. EZETIMIBE\SIMVASTATIN [Suspect]
     Active Substance: EZETIMIBE\SIMVASTATIN
     Indication: Product used for unknown indication
     Dosage: FROM GESTATIONAL WEEK 0-14
     Route: 064
     Dates: start: 20111214, end: 20120320
  10. EZETIMIBE\SIMVASTATIN [Suspect]
     Active Substance: EZETIMIBE\SIMVASTATIN
     Dosage: FROM GESTATIONAL WEEK 0-14
     Route: 064
  11. RAMIPRIL [Suspect]
     Active Substance: RAMIPRIL
     Indication: Product used for unknown indication
     Dosage: 20 MG UNK FROM GESTATIONAL WEEK 0-113+6
     Route: 064
     Dates: start: 20111214, end: 20120320
  12. RAMIPRIL [Suspect]
     Active Substance: RAMIPRIL
     Dosage: 20 MG UNK FROM GESTATIONAL WEEK 0-113+6
     Route: 064
  13. RAMIPRIL [Suspect]
     Active Substance: RAMIPRIL
     Dosage: 20 MG UNK FROM GESTATIONAL WEEK 0-113+6
     Route: 064
  14. ALISKIREN [Suspect]
     Active Substance: ALISKIREN
     Indication: Product used for unknown indication
     Route: 064
  15. ALISKIREN [Suspect]
     Active Substance: ALISKIREN
     Dosage: 0-4.6 GESTATIONAL WEEK
     Route: 064
     Dates: start: 20111214, end: 20120117
  16. XARELTO [Suspect]
     Active Substance: RIVAROXABAN
     Indication: Product used for unknown indication
     Dosage: FROM GESTATIONAL WEEK 0-5
     Route: 064
  17. XARELTO [Suspect]
     Active Substance: RIVAROXABAN
     Route: 064
  18. ALBUTEROL SULFATE [Suspect]
     Active Substance: ALBUTEROL SULFATE
     Indication: Product used for unknown indication
     Route: 064
  19. HYDROXYCHLOROQUINE [Suspect]
     Active Substance: HYDROXYCHLOROQUINE
     Indication: Product used for unknown indication
     Dosage: FROM GESTATIONAL WEEK 0-14
     Route: 064
     Dates: end: 20120320
  20. HYDROXYCHLOROQUINE [Suspect]
     Active Substance: HYDROXYCHLOROQUINE
     Dosage: FROM GESTATIONAL WEEK 0-14
     Route: 064
     Dates: start: 20111214, end: 20120320
  21. HYDROXYCHLOROQUINE [Suspect]
     Active Substance: HYDROXYCHLOROQUINE
     Dosage: FROM GESTATIONAL WEEK 0-14
     Route: 064
  22. METAMIZOLE [Suspect]
     Active Substance: METAMIZOLE
     Indication: Product used for unknown indication
     Dosage: TRIMESTER: FIRST; PROBABLY ONLY IN HOSPITAL IN WEEK 5
     Route: 064
  23. METAMIZOLE [Suspect]
     Active Substance: METAMIZOLE
     Dosage: TRIMESTER: FIRST; PROBABLY ONLY IN HOSPITAL IN WEEK 5 FROM GESTATIONAL WEEK 0-14
     Route: 064
  24. ALBUTEROL [Suspect]
     Active Substance: ALBUTEROL
     Indication: Product used for unknown indication
     Dosage: FROM GESTATIONAL WEEK 0-14
     Route: 064
  25. ALBUTEROL [Suspect]
     Active Substance: ALBUTEROL
     Dosage: FROM GESTATIONAL WEEK 0-14
     Route: 064
  26. PREDNISOLONE [Suspect]
     Active Substance: PREDNISOLONE
     Indication: Product used for unknown indication
     Dosage: FROM GESTATIONAL WEEK 0-14
     Route: 064
  27. PREDNISOLONE [Suspect]
     Active Substance: PREDNISOLONE
     Dosage: FROM GESTATIONAL WEEK 0-14
     Route: 064
     Dates: start: 20111214, end: 20120320
  28. PREDNISOLONE [Suspect]
     Active Substance: PREDNISOLONE
     Route: 064
  29. ENOXAPARIN SODIUM [Suspect]
     Active Substance: ENOXAPARIN SODIUM
     Indication: Product used for unknown indication
     Route: 064
     Dates: start: 20111214, end: 20120320
  30. ENOXAPARIN SODIUM [Suspect]
     Active Substance: ENOXAPARIN SODIUM
     Route: 064
  31. DALTEPARIN SODIUM [Suspect]
     Active Substance: DALTEPARIN SODIUM
     Indication: Product used for unknown indication
     Route: 064
  32. METAMIZOLE [Suspect]
     Active Substance: METAMIZOLE
     Indication: Product used for unknown indication
     Dosage: FROM GESTATIONAL WEEK 0-14
     Route: 064
  33. METAMIZOLE SODIUM [Suspect]
     Active Substance: METAMIZOLE SODIUM
     Indication: Product used for unknown indication
     Dosage: FROM GESTATIONAL WEEK 0-14
     Route: 064
  34. ENOXAPARIN SODIUM [Suspect]
     Active Substance: ENOXAPARIN SODIUM
     Indication: Product used for unknown indication
     Route: 064
  35. NICOTINE [Suspect]
     Active Substance: NICOTINE
     Indication: Product used for unknown indication
     Dosage: FROM GESTATIONAL WEEK 0-14
     Route: 064
  36. UNSPECIFIED INGREDIENT [Suspect]
     Active Substance: UNSPECIFIED INGREDIENT
     Indication: Product used for unknown indication
     Route: 064
  37. PANTOPRAZOLE [Suspect]
     Active Substance: PANTOPRAZOLE
     Indication: Product used for unknown indication
     Dosage: FROM GESTATIONAL WEEK 0-14
     Route: 064
  38. ASPIRIN [Suspect]
     Active Substance: ASPIRIN
     Indication: Product used for unknown indication
     Dosage: FROM GESTATIONAL WEEK 0-14
     Route: 064
  39. CYCLOPHOSPHAMIDE [Concomitant]
     Active Substance: CYCLOPHOSPHAMIDE
     Route: 064
  40. PREDNISOLONE [Concomitant]
     Active Substance: PREDNISOLONE
     Route: 064
  41. PANTOZOL [Concomitant]
     Active Substance: PANTOPRAZOLE SODIUM
     Route: 064
  42. RASILEZ [Concomitant]
     Active Substance: ALISKIREN
     Route: 064
  43. ALBUTEROL [Concomitant]
     Active Substance: ALBUTEROL
     Route: 064
  44. MIFEPRISTONE [Concomitant]
     Active Substance: MIFEPRISTONE
     Route: 064
  45. CYTOTEC [Concomitant]
     Active Substance: MISOPROSTOL
     Route: 064

REACTIONS (7)
  - Cardiac septal defect [Fatal]
  - Ventricular septal defect [Fatal]
  - Truncus arteriosus persistent [Fatal]
  - Congenital cardiovascular anomaly [Fatal]
  - Heart disease congenital [Fatal]
  - Low birth weight baby [Unknown]
  - Foetal exposure during pregnancy [Fatal]
